FAERS Safety Report 4351540-5 (Version None)
Quarter: 2004Q2

REPORT INFORMATION
  Report Type: 
  Country: None (occurrence: None)
  Receive Date: 20040428
  Receipt Date: 20040415
  Transmission Date: 20050107
  Serious: Yes (Life-Threatening, Hospitalization)
  Sender: FDA-Public Use
  Company Number: 2004-BP-02291BP

PATIENT
  Age: 41 Year
  Sex: Female
  Weight: 56.7 kg

DRUGS (3)
  1. MOBIC [Suspect]
     Indication: ARTHRALGIA
     Dosage: 15 MG (7.5 MG, 2 IN 1 D), PO
     Route: 048
     Dates: start: 20040106, end: 20040108
  2. MOBIC [Suspect]
     Indication: OSTEOARTHRITIS
     Dosage: 15 MG (7.5 MG, 2 IN 1 D), PO
     Route: 048
     Dates: start: 20040106, end: 20040108
  3. CLARITIN [Concomitant]

REACTIONS (1)
  - ANAPHYLACTIC REACTION [None]
